FAERS Safety Report 22078936 (Version 3)
Quarter: 2023Q2

REPORT INFORMATION
  Report Type: Spontaneous
  Country: US (occurrence: US)
  Receive Date: 20230309
  Receipt Date: 20230405
  Transmission Date: 20230721
  Serious: Yes (Hospitalization, Other)
  Sender: FDA-Public Use
  Company Number: US-PFIZER INC-PV202300044732

PATIENT
  Age: 64 Year
  Sex: Female

DRUGS (1)
  1. NIVESTYM [Suspect]
     Active Substance: FILGRASTIM-AAFI
     Dosage: UNK (SHE NEED SHOT 2X^S A WEEK)

REACTIONS (3)
  - White blood cell count decreased [Unknown]
  - Double hit lymphoma [Unknown]
  - Neutrophil count decreased [Unknown]
